FAERS Safety Report 8218178-0 (Version None)
Quarter: 2012Q1

REPORT INFORMATION
  Report Type: 
  Country: None (occurrence: None)
  Receive Date: 20120319
  Receipt Date: 20120301
  Transmission Date: 20120608
  Serious: Yes (Other)
  Sender: FDA-Public Use
  Company Number: US-BAYER-2012-021090

PATIENT
  Age: 57 Year
  Sex: Female

DRUGS (2)
  1. ASPIRIN [Concomitant]
  2. ASPIRIN [Suspect]
     Indication: ARTHRITIS
     Dosage: 1000 MG, PRN
     Route: 048
     Dates: start: 20110501

REACTIONS (4)
  - PHARYNGEAL ULCERATION [None]
  - THROAT IRRITATION [None]
  - VOMITING [None]
  - FOREIGN BODY [None]
